FAERS Safety Report 6242328-9 (Version None)
Quarter: 2009Q2

REPORT INFORMATION
  Report Type: 
  Country: None (occurrence: None)
  Receive Date: 20090624
  Receipt Date: 20090617
  Transmission Date: 20091009
  Serious: Yes (Hospitalization)
  Sender: FDA-Public Use
  Company Number: US-BIOGENIDEC-2009BI001090

PATIENT
  Age: 45 Year
  Sex: Female
  Weight: 113 kg

DRUGS (1)
  1. TYSABRI [Suspect]
     Indication: MULTIPLE SCLEROSIS
     Route: 042
     Dates: start: 20071114

REACTIONS (6)
  - BLADDER PROLAPSE [None]
  - PARALYSIS [None]
  - POST PROCEDURAL COMPLICATION [None]
  - URETHRAL DISORDER [None]
  - URINARY INCONTINENCE [None]
  - WOUND DEHISCENCE [None]
